FAERS Safety Report 20501670 (Version 1)
Quarter: 2022Q1

REPORT INFORMATION
  Report Type: Spontaneous
  Country: PK (occurrence: PK)
  Receive Date: 20220222
  Receipt Date: 20220222
  Transmission Date: 20220423
  Serious: Yes (Hospitalization, Other)
  Sender: FDA-Public Use
  Company Number: PK-EDENBRIDGE PHARMACEUTICALS, LLC-PK-2022EDE000013

PATIENT
  Age: 27 Year
  Sex: Male

DRUGS (2)
  1. LOPERAMIDE [Suspect]
     Active Substance: LOPERAMIDE
     Indication: Diarrhoea
     Dosage: UNK
  2. LOPERAMIDE [Suspect]
     Active Substance: LOPERAMIDE
     Dosage: OVER 100 TABLETS, QD

REACTIONS (5)
  - Generalised tonic-clonic seizure [Recovered/Resolved]
  - Cardiogenic shock [Recovered/Resolved]
  - Torsade de pointes [Recovered/Resolved]
  - Cardiotoxicity [Recovered/Resolved]
  - Overdose [Recovered/Resolved]
